FAERS Safety Report 18806750 (Version 1)
Quarter: 2021Q1

REPORT INFORMATION
  Report Type: Spontaneous
  Country: US (occurrence: US)
  Receive Date: 20210129
  Receipt Date: 20210129
  Transmission Date: 20210419
  Serious: No
  Sender: FDA-Public Use
  Company Number: US-TEVA-2021-US-1866568

PATIENT
  Age: 65 Year
  Sex: Female

DRUGS (18)
  1. BUPROPIONE HCL [Concomitant]
     Route: 048
  2. LOSARTAN POTASSIUM. [Concomitant]
     Active Substance: LOSARTAN POTASSIUM
     Indication: HYPERTENSION
     Dosage: 100 MILLIGRAM DAILY;
     Route: 048
  3. TERBINAFINE HCL [Concomitant]
     Active Substance: TERBINAFINE HYDROCHLORIDE
     Indication: ONYCHOMYCOSIS
     Dosage: 250 MILLIGRAM DAILY;
     Route: 048
  4. ROSUVASTATIN CALCIUM. [Concomitant]
     Active Substance: ROSUVASTATIN CALCIUM
     Indication: HYPERLIPIDAEMIA
     Dosage: 20 MILLIGRAM DAILY;
     Route: 048
  5. SLOW FE ORAL TABLET EXTENDED RELEASE [Concomitant]
     Indication: IRON DEFICIENCY
     Dosage: 284 MILLIGRAM DAILY; EXTENDED RELEASE
     Route: 048
  6. VITAMIN D ORAL CAPSULE [Concomitant]
     Route: 048
  7. ALLEGRA ALLERGY [Concomitant]
     Active Substance: FEXOFENADINE HYDROCHLORIDE
     Indication: SEASONAL ALLERGY
     Dosage: 180 MILLIGRAM DAILY;
     Route: 048
  8. CRANBERRY CONCENTRATE [Concomitant]
     Active Substance: CRANBERRY CONCENTRATE
     Route: 048
  9. CARVEDILOL 12.5 MG [Concomitant]
     Active Substance: CARVEDILOL
     Indication: HYPERTENSION
     Dosage: 25 MILLIGRAM DAILY;
     Route: 048
  10. CVS VITAMIN B12 ORAL TABLET [Concomitant]
     Dosage: 1000 MICROGRAM DAILY;
     Route: 048
  11. HYDRALAZINE HCL [Concomitant]
     Active Substance: HYDRALAZINE HYDROCHLORIDE
     Indication: HYPERTENSION
     Dosage: 200 MILLIGRAM DAILY;
     Route: 048
  12. AUSTEDO [Suspect]
     Active Substance: DEUTETRABENAZINE
     Indication: TARDIVE DYSKINESIA
     Dosage: 24 MILLIGRAM DAILY;
     Route: 048
  13. AMLODIPINE BESYLATE. [Concomitant]
     Active Substance: AMLODIPINE BESYLATE
     Indication: HYPERTENSION
     Dosage: 10 MILLIGRAM DAILY;
     Route: 048
  14. GABAPENTIN ORAL CAPSULES 300 MG [Concomitant]
     Indication: ANXIETY
     Dosage: 900 MILLIGRAM DAILY;
     Route: 048
  15. LORAZEPAM. [Concomitant]
     Active Substance: LORAZEPAM
     Indication: ANXIETY
     Dosage: .5 MILLIGRAM DAILY;
     Route: 048
  16. MULTIVITAMIN WOMAN 50+ [Concomitant]
     Route: 048
  17. OMEPRAZOLE ORAL CAPSULES [Concomitant]
     Indication: GASTROOESOPHAGEAL REFLUX DISEASE
     Dosage: 20 MILLIGRAM DAILY; DELAYED RELEASE
     Route: 048
  18. SERTRALINE HCL [Concomitant]
     Active Substance: SERTRALINE HYDROCHLORIDE
     Indication: ANXIETY
     Dosage: 200 MILLIGRAM DAILY;
     Route: 048

REACTIONS (1)
  - Drooling [Unknown]

NARRATIVE: CASE EVENT DATE: 202012
